FAERS Safety Report 7597968-1 (Version None)
Quarter: 2011Q3

REPORT INFORMATION
  Report Type: 
  Country: None (occurrence: None)
  Receive Date: 20110708
  Receipt Date: 20110701
  Transmission Date: 20111222
  Serious: Yes (Other)
  Sender: FDA-Public Use
  Company Number: PHHY2011JP59201

PATIENT
  Age: 59 Year
  Sex: Male

DRUGS (2)
  1. TACROLIMUS [Suspect]
     Indication: RENAL TRANSPLANT
     Dosage: 7 MG/DAY
  2. MYCOPHENOLATE MEFETIL [Concomitant]
     Indication: RENAL TRANSPLANT
     Dosage: 1500 MG/DAY

REACTIONS (10)
  - URINE OUTPUT DECREASED [None]
  - BLOOD CREATININE INCREASED [None]
  - THROMBOTIC MICROANGIOPATHY [None]
  - HAEMOGLOBIN DECREASED [None]
  - RENAL TUBULAR DISORDER [None]
  - BLOOD LACTATE DEHYDROGENASE INCREASED [None]
  - HAEMATOCRIT DECREASED [None]
  - KIDNEY FIBROSIS [None]
  - NEPHROPATHY TOXIC [None]
  - GRAFT THROMBOSIS [None]
